FAERS Safety Report 6146184-9 (Version None)
Quarter: 2009Q2

REPORT INFORMATION
  Report Type: 
  Country: None (occurrence: None)
  Receive Date: 20090407
  Receipt Date: 20090303
  Transmission Date: 20091009
  Serious: Yes (Other)
  Sender: FDA-Public Use
  Company Number: SA-ROCHE-613417

PATIENT
  Sex: Female
  Weight: 152 kg

DRUGS (2)
  1. CAPECITABINE [Suspect]
     Route: 065
     Dates: start: 20080405
  2. BEVACIZUMAB [Suspect]
     Dosage: LAST DOSE PRIOR TO SAE: 30 JUNE 2008
     Route: 042
     Dates: start: 20080405

REACTIONS (2)
  - HYPERBILIRUBINAEMIA [None]
  - LYMPHOPENIA [None]
